FAERS Safety Report 8425070 (Version 2)
Quarter: 2016Q3

REPORT INFORMATION
  Report Type: Spontaneous
  Country: JP (occurrence: JP)
  Receive Date: 20120224
  Receipt Date: 20160818
  Transmission Date: 20161109
  Serious: Yes (Hospitalization)
  Sender: FDA-Public Use
  Company Number: JP-GLAXOSMITHKLINE-B0779151A

PATIENT
  Age: 35 Year
  Sex: Female

DRUGS (9)
  1. CYMBALTA [Concomitant]
     Active Substance: DULOXETINE HYDROCHLORIDE
     Indication: DEPRESSION
     Route: 048
  2. AMOXAN [Concomitant]
     Active Substance: AMOXAPINE
     Indication: DEPRESSION
     Route: 048
  3. LAMOTRIGINE. [Suspect]
     Active Substance: LAMOTRIGINE
     Route: 048
     Dates: start: 20111221, end: 20111228
  4. LAMOTRIGINE. [Suspect]
     Active Substance: LAMOTRIGINE
     Indication: BIPOLAR DISORDER
     Route: 048
     Dates: start: 20111213, end: 20111221
  5. LAMOTRIGINE. [Suspect]
     Active Substance: LAMOTRIGINE
     Route: 048
     Dates: start: 20111229, end: 20120104
  6. MAGMITT [Concomitant]
     Active Substance: MAGNESIUM OXIDE
     Indication: CONSTIPATION
     Route: 048
  7. LAMOTRIGINE. [Suspect]
     Active Substance: LAMOTRIGINE
     Route: 048
     Dates: start: 20120105
  8. SEROQUEL [Concomitant]
     Active Substance: QUETIAPINE FUMARATE
     Indication: INSOMNIA
     Route: 048
  9. GASMOTIN [Concomitant]
     Active Substance: MOSAPRIDE CITRATE
     Route: 048

REACTIONS (7)
  - Ocular hyperaemia [Unknown]
  - Erythema [Recovering/Resolving]
  - Angular cheilitis [Unknown]
  - Erythema [Unknown]
  - Rash generalised [Unknown]
  - Rash maculo-papular [Unknown]
  - Drug eruption [Unknown]

NARRATIVE: CASE EVENT DATE: 20120115
